FAERS Safety Report 4813662-1 (Version None)
Quarter: 2005Q4

REPORT INFORMATION
  Report Type: 
  Country: None (occurrence: None)
  Receive Date: 20051028
  Receipt Date: 20050309
  Transmission Date: 20060501
  Serious: No
  Sender: FDA-Public Use
  Company Number: US-GLAXOSMITHKLINE-A0548886A

PATIENT
  Age: 56 Year
  Sex: Male

DRUGS (3)
  1. IMITREX [Suspect]
     Indication: DRUG USE FOR UNKNOWN INDICATION
     Route: 045
  2. CELEBREX [Suspect]
  3. NAPROXEN [Suspect]

REACTIONS (1)
  - DRUG INEFFECTIVE [None]
